FAERS Safety Report 6985917-6 (Version None)
Quarter: 2010Q3

REPORT INFORMATION
  Report Type: 
  Country: None (occurrence: None)
  Receive Date: 20100827
  Receipt Date: 20100721
  Transmission Date: 20110219
  Serious: No
  Sender: FDA-Public Use
  Company Number: 015211

PATIENT
  Sex: Male
  Weight: 151.9 kg

DRUGS (6)
  1. LACOSAMIDE [Suspect]
     Indication: PARTIAL SEIZURES
     Dosage: (600 MG ORAL) , (50 MG , DAILY ORAL), (100 MG QID ORAL)
     Route: 048
  2. KEPPRA [Suspect]
     Indication: CONVULSION
     Dosage: (250 MG, DAILY ORAL)
     Route: 048
  3. METOPROLOL TARTRATE [Concomitant]
  4. ZOCOR [Concomitant]
  5. INSPRA [Concomitant]
  6. PROCARDIA [Concomitant]

REACTIONS (6)
  - CONSTIPATION [None]
  - DIZZINESS [None]
  - DRUG INTOLERANCE [None]
  - FEELING ABNORMAL [None]
  - HEADACHE [None]
  - HYPERHIDROSIS [None]
